FAERS Safety Report 6970284-4 (Version None)
Quarter: 2010Q3

REPORT INFORMATION
  Report Type: 
  Country: None (occurrence: None)
  Receive Date: 20100908
  Receipt Date: 20100826
  Transmission Date: 20110219
  Serious: Yes (Hospitalization, Disabling, Other)
  Sender: FDA-Public Use
  Company Number: PHHY2010FR56661

PATIENT
  Sex: Female

DRUGS (10)
  1. TAREG [Suspect]
     Indication: HYPERTENSION
     Dosage: 80 MG ONCE PER DAY
     Route: 048
  2. TAHOR [Suspect]
     Indication: HYPERCHOLESTEROLAEMIA
     Dosage: 40 MG ONCE PER DAY
     Route: 048
     Dates: end: 20100301
  3. SITAGLIPTIN [Suspect]
     Indication: DIABETES MELLITUS
     Dosage: 100 MG ONCE PER DAY
     Route: 048
     Dates: start: 20091201, end: 20100301
  4. PARIET [Suspect]
     Indication: GASTROOESOPHAGEAL REFLUX DISEASE
     Dosage: 20 MG ONCE PER DAY
     Route: 048
     Dates: end: 20100201
  5. PAROXETINE HCL [Suspect]
     Indication: DEPRESSION
     Dosage: 20 MG ONCE PER DAY
     Route: 048
  6. METFORMIN HCL [Suspect]
     Dosage: 500 MG TWICE PER DAY
     Route: 048
  7. BISOPROLOL FUMARATE [Suspect]
     Indication: HYPERTENSION
     Dosage: 5 MG ONCE PER DAY
     Route: 048
  8. KARDEGIC [Suspect]
     Indication: MYOCARDIAL ISCHAEMIA
     Dosage: UNK, ONCE PER DAY
     Route: 048
  9. LEVOTHYROXINE SODIUM [Suspect]
     Indication: HYPOTHYROIDISM
     Dosage: 75 MICROG ONCE PER DAY
     Route: 048
  10. PROTON PUMP INHIBITORS [Concomitant]
     Indication: GASTROOESOPHAGEAL REFLUX DISEASE

REACTIONS (12)
  - BLOOD CREATINE PHOSPHOKINASE INCREASED [None]
  - DIABETIC NEUROPATHY [None]
  - GENERAL PHYSICAL HEALTH DETERIORATION [None]
  - HYPERHIDROSIS [None]
  - HYPOAESTHESIA [None]
  - MYALGIA [None]
  - NEURALGIA [None]
  - OSTEOARTHRITIS [None]
  - RHABDOMYOLYSIS [None]
  - SYSTEMIC INFLAMMATORY RESPONSE SYNDROME [None]
  - VULVOVAGINAL BURNING SENSATION [None]
  - WEIGHT DECREASED [None]
